FAERS Safety Report 11661284 (Version 1)
Quarter: 2015Q4

REPORT INFORMATION
  Report Type: Spontaneous
  Country: AU (occurrence: AU)
  Receive Date: 20151026
  Receipt Date: 20151026
  Transmission Date: 20160304
  Serious: Yes (Hospitalization)
  Sender: FDA-Public Use
  Company Number: PHHY2015AU135879

PATIENT
  Age: 75 Year
  Sex: Male
  Weight: 45 kg

DRUGS (4)
  1. ACETYLSALICYLIC ACID [Suspect]
     Active Substance: ASPIRIN
     Dosage: 27 G (600 MG/KG), UNK (2ND OVERDOSE)
     Route: 065
  2. ACETYLSALICYLIC ACID [Suspect]
     Active Substance: ASPIRIN
     Dosage: 14.4 G (320 MG/KG), UNK (4TH OVERDOSE)
     Route: 065
  3. ACETYLSALICYLIC ACID [Suspect]
     Active Substance: ASPIRIN
     Dosage: 22.4 G (498 MG/KG), UNK (3RD OVERDOSE)
     Route: 065
  4. ACETYLSALICYLIC ACID [Suspect]
     Active Substance: ASPIRIN
     Indication: PRODUCT USED FOR UNKNOWN INDICATION
     Dosage: 27 G (600MG/KG), UNK (1ST OVERDOSE)
     Route: 065

REACTIONS (3)
  - Intentional overdose [Recovered/Resolved]
  - Respiratory alkalosis [Recovered/Resolved]
  - Hypokalaemia [Recovered/Resolved]
